FAERS Safety Report 9162033 (Version 1)
Quarter: 2013Q1

REPORT INFORMATION
  Report Type: Spontaneous
  Country: IE (occurrence: IE)
  Receive Date: 20130314
  Receipt Date: 20130314
  Transmission Date: 20140127
  Serious: Yes (Other)
  Sender: FDA-Public Use
  Company Number: IE-JNJFOC-20130306171

PATIENT
  Sex: Male

DRUGS (11)
  1. SIMPONI [Suspect]
     Indication: RHEUMATOID ARTHRITIS
     Route: 058
     Dates: start: 20120118
  2. METHOTREXATE [Concomitant]
     Route: 065
  3. OMACOR [Concomitant]
     Route: 065
  4. BONVIVA [Concomitant]
     Route: 065
  5. CALCICHEW [Concomitant]
     Route: 065
  6. DIFENAC [Concomitant]
     Route: 065
  7. PARALIEF [Concomitant]
     Route: 065
  8. PREDNISOLONE [Concomitant]
     Route: 065
  9. FOLIC ACID [Concomitant]
     Route: 065
  10. LIPITOR [Concomitant]
     Route: 065
  11. GLUCOPHAGE [Concomitant]
     Route: 065

REACTIONS (1)
  - Knee operation [Unknown]
